FAERS Safety Report 10589473 (Version 1)
Quarter: 2014Q4

REPORT INFORMATION
  Report Type: Spontaneous
  Country: US (occurrence: None)
  Receive Date: 20141114
  Receipt Date: 20141114
  Transmission Date: 20150529
  Serious: Yes (Hospitalization)
  Sender: FDA-Public Use
  Company Number: US-ZYDUS-005489

PATIENT
  Age: 75 Year
  Sex: Female

DRUGS (1)
  1. CLOPIDOGREL [Suspect]
     Active Substance: CLOPIDOGREL BISULFATE

REACTIONS (6)
  - Thrombocytopenia [None]
  - Hypersensitivity [None]
  - Hepatotoxicity [None]
  - Anaemia [None]
  - Drug-induced liver injury [None]
  - Cholestasis [None]
